FAERS Safety Report 7092756-7 (Version None)
Quarter: 2010Q4

REPORT INFORMATION
  Report Type: 
  Country: None (occurrence: None)
  Receive Date: 20101109
  Receipt Date: 20101109
  Transmission Date: 20110411
  Serious: Yes (Hospitalization, Disabling, Other)
  Sender: FDA-Public Use
  Company Number: None

PATIENT
  Age: 27 Year
  Sex: Female
  Weight: 72.5755 kg

DRUGS (1)
  1. SEROQUEL XR [Suspect]
     Indication: DEPRESSION
     Dosage: 50MG 1X DAY ORAL
     Route: 048
     Dates: start: 20100326

REACTIONS (4)
  - FALL [None]
  - MUSCLE STRAIN [None]
  - SPINAL COMPRESSION FRACTURE [None]
  - SYNCOPE [None]
